FAERS Safety Report 8182658-7 (Version None)
Quarter: 2012Q1

REPORT INFORMATION
  Report Type: 
  Country: None (occurrence: None)
  Receive Date: 20120305
  Receipt Date: 20120228
  Transmission Date: 20120608
  Serious: No
  Sender: FDA-Public Use
  Company Number: US-PFIZER INC-2012052934

PATIENT
  Sex: Female
  Weight: 69.4 kg

DRUGS (2)
  1. FOLIC ACID [Concomitant]
     Dosage: UNK
  2. MEDROXYPROGESTERONE ACETATE [Suspect]
     Indication: CONTRACEPTION
     Dosage: 150 MG, UNK
     Dates: start: 20111114

REACTIONS (8)
  - ACTIVITIES OF DAILY LIVING IMPAIRED [None]
  - INSOMNIA [None]
  - WHITE BLOOD CELL COUNT DECREASED [None]
  - ASTHENIA [None]
  - DEPRESSION [None]
  - AMENORRHOEA [None]
  - CRYING [None]
  - ALOPECIA [None]
